FAERS Safety Report 12667741 (Version 1)
Quarter: 2016Q3

REPORT INFORMATION
  Report Type: Spontaneous
  Country: FR (occurrence: FR)
  Receive Date: 20160819
  Receipt Date: 20160819
  Transmission Date: 20161109
  Serious: Yes (Death, Other)
  Sender: FDA-Public Use
  Company Number: FR-ASTRAZENECA-2016SE88320

PATIENT
  Age: 31723 Day
  Sex: Female

DRUGS (11)
  1. MIRTAZAPINE ARROW [Suspect]
     Active Substance: MIRTAZAPINE
     Indication: DEPRESSION
     Route: 048
     Dates: start: 20160718, end: 20160720
  2. MIRTAZAPINE ARROW [Suspect]
     Active Substance: MIRTAZAPINE
     Indication: DEPRESSION
     Route: 048
     Dates: start: 20160712, end: 20160718
  3. KARDEGIC [Concomitant]
     Active Substance: ASPIRIN LYSINE
     Route: 048
     Dates: end: 20160724
  4. INEXIUM [Suspect]
     Active Substance: ESOMEPRAZOLE
     Indication: GASTRITIS
     Route: 048
     Dates: start: 20160706, end: 20160724
  5. FUROSEMIDE ARROW [Suspect]
     Active Substance: FUROSEMIDE
     Route: 048
  6. LEVOTHYROX [Concomitant]
     Active Substance: LEVOTHYROXINE
     Route: 048
     Dates: end: 20160726
  7. PRAVASTATIN. [Concomitant]
     Active Substance: PRAVASTATIN
     Route: 048
     Dates: end: 20160726
  8. PERINDOPRIL [Concomitant]
     Active Substance: PERINDOPRIL
     Route: 048
     Dates: end: 20160724
  9. FUROSEMIDE ARROW [Suspect]
     Active Substance: FUROSEMIDE
     Route: 048
     Dates: start: 20160720, end: 20160724
  10. MIRTAZAPINE ARROW [Suspect]
     Active Substance: MIRTAZAPINE
     Indication: DEPRESSION
     Route: 048
     Dates: start: 20160720, end: 20160724
  11. NEBIVOLOL. [Concomitant]
     Active Substance: NEBIVOLOL
     Dates: end: 20160726

REACTIONS (8)
  - Hypophagia [Unknown]
  - Arachnoid cyst [Unknown]
  - Cardiac failure [Unknown]
  - Parotitis [Unknown]
  - Dehydration [Unknown]
  - Thrombocytopenia [Not Recovered/Not Resolved]
  - Major depression [Unknown]
  - Multiple organ dysfunction syndrome [Fatal]

NARRATIVE: CASE EVENT DATE: 20160718
